FAERS Safety Report 15311075 (Version 1)
Quarter: 2018Q3

REPORT INFORMATION
  Report Type: Spontaneous
  Country: US (occurrence: US)
  Receive Date: 20180814
  Receipt Date: 20180814
  Transmission Date: 20181010
  Serious: No
  Sender: FDA-Public Use
  Company Number: None

PATIENT
  Age: 27 Year
  Sex: Female

DRUGS (1)
  1. COPAXONE [Suspect]
     Active Substance: GLATIRAMER ACETATE
     Dosage: OTHER
     Route: 058

REACTIONS (13)
  - Diarrhoea [None]
  - Palpitations [None]
  - Injection site haemorrhage [None]
  - Immediate post-injection reaction [None]
  - Dizziness [None]
  - Hyperhidrosis [None]
  - Nasopharyngitis [None]
  - Tremor [None]
  - Chest discomfort [None]
  - Wrong technique in product usage process [None]
  - Flushing [None]
  - Dyspnoea [None]
  - Vascular injury [None]

NARRATIVE: CASE EVENT DATE: 20180814
